FAERS Safety Report 5101905-9 (Version None)
Quarter: 2006Q3

REPORT INFORMATION
  Report Type: 
  Country: None (occurrence: None)
  Receive Date: 20060907
  Receipt Date: 20060823
  Transmission Date: 20061208
  Serious: Yes (Death)
  Sender: FDA-Public Use
  Company Number: 2006S1008001

PATIENT
  Sex: Female

DRUGS (5)
  1. AMITRIPTYLINE HYDROCHLORIDE [Suspect]
     Indication: DEPRESSION
  2. KADIAN [Suspect]
     Indication: BACK PAIN
     Dosage: 60 MG; QD; PO
     Route: 048
     Dates: start: 20031101
  3. LEXAPRO [Suspect]
     Indication: DEPRESSION
  4. VALIUM [Suspect]
     Indication: DEPRESSION
  5. OXYCODONE HCL [Concomitant]

REACTIONS (1)
  - MULTIPLE DRUG OVERDOSE [None]
